FAERS Safety Report 6698130-7 (Version None)
Quarter: 2010Q2

REPORT INFORMATION
  Report Type: 
  Country: None (occurrence: None)
  Receive Date: 20100427
  Receipt Date: 20100415
  Transmission Date: 20101027
  Serious: Yes (Death)
  Sender: FDA-Public Use
  Company Number: US-PFIZER INC-2010030578

PATIENT
  Age: 45 Year
  Sex: Female
  Weight: 57.596 kg

DRUGS (3)
  1. XANAX [Suspect]
     Dosage: UNK
  2. OXYCONTIN [Suspect]
     Dosage: UNK
  3. ALCOHOL [Suspect]
     Dosage: UNK

REACTIONS (2)
  - DEATH [None]
  - INTENTIONAL DRUG MISUSE [None]
